FAERS Safety Report 25028803 (Version 1)
Quarter: 2025Q1

REPORT INFORMATION
  Report Type: Report from Study
  Country: US (occurrence: US)
  Receive Date: 20250302
  Receipt Date: 20250302
  Transmission Date: 20250408
  Serious: Yes (Hospitalization)
  Sender: JOHNSON AND JOHNSON
  Company Number: US-JNJFOC-20250259997

PATIENT
  Age: 62 Year
  Sex: Male

DRUGS (7)
  1. SPRAVATO [Suspect]
     Active Substance: ESKETAMINE
     Indication: Depression
     Route: 045
     Dates: start: 20200422, end: 20200508
  2. SPRAVATO [Suspect]
     Active Substance: ESKETAMINE
     Route: 045
     Dates: start: 20200513, end: 20200515
  3. SPRAVATO [Suspect]
     Active Substance: ESKETAMINE
     Route: 045
     Dates: start: 20200520, end: 20200520
  4. SPRAVATO [Suspect]
     Active Substance: ESKETAMINE
     Route: 045
     Dates: start: 20200522, end: 20200522
  5. SPRAVATO [Suspect]
     Active Substance: ESKETAMINE
     Route: 045
     Dates: start: 20200527, end: 20200527
  6. SPRAVATO [Suspect]
     Active Substance: ESKETAMINE
     Route: 045
     Dates: start: 20200529, end: 20250211
  7. SPRAVATO [Suspect]
     Active Substance: ESKETAMINE
     Route: 045
     Dates: start: 20250218, end: 20250218

REACTIONS (2)
  - Hypertensive crisis [Recovered/Resolved]
  - Dissociation [Recovered/Resolved]

NARRATIVE: CASE EVENT DATE: 20250218
